FAERS Safety Report 15277073 (Version 1)
Quarter: 2018Q3

REPORT INFORMATION
  Report Type: Spontaneous
  Country: JP (occurrence: JP)
  Receive Date: 20180814
  Receipt Date: 20180814
  Transmission Date: 20181010
  Serious: Yes (Death, Other)
  Sender: FDA-Public Use
  Company Number: JP-DSJP-DSJ-2018-133668

PATIENT

DRUGS (10)
  1. LIXIANA TABLETS 30MG [Suspect]
     Active Substance: EDOXABAN TOSYLATE
     Indication: ATRIAL FIBRILLATION
     Dosage: 30 MG, QD
     Route: 048
     Dates: start: 20180712, end: 20180716
  2. ACE INHIBITORS [Concomitant]
     Active Substance: UNSPECIFIED INGREDIENT
     Dosage: UNK
     Route: 065
  3. FUROSEMIDE. [Concomitant]
     Active Substance: FUROSEMIDE
     Dosage: 20 MG, BID
     Route: 041
     Dates: start: 20180712, end: 20180723
  4. SAMSCA [Concomitant]
     Active Substance: TOLVAPTAN
     Dosage: 7.5 MG, QD
     Route: 048
     Dates: start: 20180712, end: 20180723
  5. LANSOPRAZOLE. [Concomitant]
     Active Substance: LANSOPRAZOLE
     Dosage: 15 MG, QD
     Route: 048
     Dates: start: 20180712, end: 20180720
  6. DONEPEZIL                          /01318902/ [Concomitant]
     Active Substance: DONEPEZIL
     Dosage: 3 MG, QD
     Route: 048
     Dates: start: 20180714, end: 20180720
  7. CEFTRIAXONE SODIUM. [Concomitant]
     Active Substance: CEFTRIAXONE SODIUM
     Dosage: 2 G, BID
     Route: 041
     Dates: start: 20180712, end: 20180721
  8. TIAPRIDE                           /00435702/ [Concomitant]
     Dosage: 25 MG, QD
     Route: 048
     Dates: start: 20180714, end: 20180720
  9. SOLITA?T3 [Concomitant]
     Active Substance: POTASSIUM CHLORIDE\SODIUM CHLORIDE\SODIUM LACTATE
     Dosage: 1000 ML, BID
     Route: 041
     Dates: start: 20180712, end: 20180717
  10. FEBURIC [Concomitant]
     Active Substance: FEBUXOSTAT
     Dosage: 10 MG, QD
     Route: 048
     Dates: start: 20180713, end: 20180720

REACTIONS (4)
  - International normalised ratio increased [Not Recovered/Not Resolved]
  - Cardiac failure congestive [Fatal]
  - Hepatic function abnormal [Fatal]
  - Haemorrhage subcutaneous [Not Recovered/Not Resolved]

NARRATIVE: CASE EVENT DATE: 20180716
